FAERS Safety Report 4425836-2 (Version None)
Quarter: 2004Q3

REPORT INFORMATION
  Report Type: 
  Country: None (occurrence: None)
  Receive Date: 20040811
  Receipt Date: 20040729
  Transmission Date: 20050211
  Serious: Yes (Other)
  Sender: FDA-Public Use
  Company Number: 04-00415

PATIENT
  Age: 47 Year
  Sex: Female

DRUGS (2)
  1. CARBAMAZEPINE [Suspect]
     Indication: BIPOLAR DISORDER
     Dosage: 800 MG, ONCE
  2. DILTIAZEM HYDROCHLORIDE EXTENDED-RELEASE CAPSULES USP, 120MG (PUREPAC) [Suspect]
     Indication: SINUS TACHYCARDIA
     Dosage: 120MG, ONCE DAILY

REACTIONS (14)
  - AGITATION [None]
  - ANTICONVULSANT DRUG LEVEL ABOVE THERAPEUTIC [None]
  - AORTIC BYPASS [None]
  - ATAXIA [None]
  - CEREBELLAR SYNDROME [None]
  - CONFUSIONAL STATE [None]
  - DISORIENTATION [None]
  - DRUG INTERACTION [None]
  - DYSARTHRIA [None]
  - NEUROTOXICITY [None]
  - OPHTHALMOPLEGIA [None]
  - POST PROCEDURAL COMPLICATION [None]
  - SINUS TACHYCARDIA [None]
  - THERAPEUTIC AGENT TOXICITY [None]
